FAERS Safety Report 14918294 (Version 1)
Quarter: 2018Q2

REPORT INFORMATION
  Report Type: Spontaneous
  Country: US (occurrence: US)
  Receive Date: 20180521
  Receipt Date: 20180521
  Transmission Date: 20180711
  Serious: No
  Sender: FDA-Public Use
  Company Number: US-TEVA-821235ACC

PATIENT
  Age: 15 Year
  Sex: Male

DRUGS (1)
  1. TESTOSTERONE. [Suspect]
     Active Substance: TESTOSTERONE
     Indication: HYPOGONADISM

REACTIONS (4)
  - Injection site nodule [Unknown]
  - Injection site pain [Unknown]
  - Drug ineffective [Unknown]
  - Product physical consistency issue [Unknown]
